FAERS Safety Report 15609913 (Version 1)
Quarter: 2018Q4

REPORT INFORMATION
  Report Type: Spontaneous
  Country: IT (occurrence: IT)
  Receive Date: 20181113
  Receipt Date: 20181113
  Transmission Date: 20190205
  Serious: Yes (Hospitalization)
  Sender: FDA-Public Use
  Company Number: IT-ACCORD-091504

PATIENT
  Age: 68 Year
  Sex: Female

DRUGS (2)
  1. GEMCITABINE/GEMCITABINE HYDROCHLORIDE [Suspect]
     Active Substance: GEMCITABINE\GEMCITABINE HYDROCHLORIDE
     Indication: PANCREATIC CARCINOMA
     Dosage: 3 CYCLES OF WEEKLY GEMCITABINE,ON DAYS 1, 8 AND 15 EVERY 4 WEEKS
  2. PACLITAXEL/PACLITAXEL LIPOSOME [Suspect]
     Active Substance: PACLITAXEL
     Indication: PANCREATIC CARCINOMA
     Dosage: ON DAYS 1, 8 AND 15 EVERY 4 WEEKS, FOR 12 CYCLES

REACTIONS (1)
  - Organising pneumonia [Recovered/Resolved]
